FAERS Safety Report 7653614 (Version 3)
Quarter: 2012Q4

REPORT INFORMATION
  Report Type: Report from Study
  Country: US (occurrence: US)
  Receive Date: 20101102
  Receipt Date: 20120910
  Transmission Date: 20130627
  Serious: Yes (Hospitalization)
  Sender: FDA-Public Use
  Company Number: US-ROCHE-735108

PATIENT
  Age: 74 Year
  Sex: Female
  Weight: 55.3 kg

DRUGS (11)
  1. AVASTIN [Suspect]
     Indication: NON-SMALL CELL LUNG CANCER STAGE IV
     Dosage: LAST DOSE PRIOR TO SAE: 20 AUGUST 2010
     Route: 042
  2. CARBOPLATIN [Suspect]
     Indication: NON-SMALL CELL LUNG CANCER STAGE IV
     Dosage: DOSE 6 DF, LAST DOSE PRIOR TO SAE: 20 AUGUST 2010, DOSE: 6 AUC
     Route: 042
  3. PEMETREXED DISODIUM [Suspect]
     Indication: NON-SMALL CELL LUNG CANCER STAGE IV
     Dosage: LAST DOSE PRIOR TO SAE: 20 AUGUST 2010
     Route: 042
  4. DEXAMETHASONE [Concomitant]
     Route: 065
     Dates: start: 20100820, end: 20100821
  5. ATIVAN [Concomitant]
     Route: 065
  6. DARVOCET [Concomitant]
     Route: 065
  7. TOPROL [Concomitant]
     Route: 065
     Dates: start: 201008, end: 20100823
  8. VITAMIN B12 [Concomitant]
     Route: 065
  9. FOLIC ACID [Concomitant]
     Route: 065
  10. LISINOPRIL [Concomitant]
     Route: 065
     Dates: start: 201008
  11. HYDROCHLOROTHIAZIDE [Concomitant]
     Route: 065
     Dates: start: 201008

REACTIONS (2)
  - Palpitations [Recovered/Resolved]
  - Hypertension [Recovered/Resolved]
